FAERS Safety Report 4475121-8 (Version None)
Quarter: 2004Q4

REPORT INFORMATION
  Report Type: 
  Country: None (occurrence: None)
  Receive Date: 20041013
  Receipt Date: 20041013
  Transmission Date: 20050328
  Serious: Yes (Other)
  Sender: FDA-Public Use
  Company Number: None

PATIENT
  Age: 44 Year
  Sex: Female
  Weight: 90.7194 kg

DRUGS (2)
  1. BEXTRA [Suspect]
     Dosage: 1 TIME DAIL   ORAL
     Route: 048
  2. ZOLOFT [Suspect]
     Dosage: 1 TIME DAILY   ORAL
     Route: 048

REACTIONS (1)
  - RASH [None]
